FAERS Safety Report 5233365-1 (Version None)
Quarter: 2007Q1

REPORT INFORMATION
  Report Type: 
  Country: None (occurrence: None)
  Receive Date: 20070206
  Receipt Date: 20070206
  Transmission Date: 20070707
  Serious: No
  Sender: FDA-Public Use
  Company Number: None

PATIENT
  Sex: Female
  Weight: 49.8957 kg

DRUGS (1)
  1. TRINESSA [Suspect]
     Indication: CONTRACEPTION
     Dosage: QD PO
     Route: 048
     Dates: start: 20061231, end: 20070130

REACTIONS (3)
  - DRUG DISPENSING ERROR [None]
  - NAUSEA [None]
  - WRONG DRUG ADMINISTERED [None]
